FAERS Safety Report 9920844 (Version 1)
Quarter: 2014Q1

REPORT INFORMATION
  Report Type: Spontaneous
  Country: US (occurrence: US)
  Receive Date: 20140225
  Receipt Date: 20140225
  Transmission Date: 20141002
  Serious: No
  Sender: FDA-Public Use
  Company Number: US-009507513-1402USA009574

PATIENT
  Age: 77 Year
  Sex: Female

DRUGS (6)
  1. ZIOPTAN [Suspect]
     Indication: GLAUCOMA
     Dosage: ONE DROP IN EACH EYE TAKEN ONCE NIGHTLY
     Route: 047
  2. CRESTOR [Concomitant]
  3. VITAMINS (UNSPECIFIED) [Concomitant]
  4. CALCIUM (UNSPECIFIED) [Concomitant]
  5. VITAMIN D (UNSPECIFIED) [Concomitant]
  6. ASPIRIN [Concomitant]
     Dosage: LOW DOSE

REACTIONS (2)
  - Dysphonia [Not Recovered/Not Resolved]
  - Cough [Not Recovered/Not Resolved]
